FAERS Safety Report 22024795 (Version 1)
Quarter: 2023Q1

REPORT INFORMATION
  Report Type: Spontaneous
  Country: US (occurrence: None)
  Receive Date: 20230223
  Receipt Date: 20230223
  Transmission Date: 20230418
  Serious: No
  Sender: FDA-Public Use
  Company Number: US-ROCHE-3073684

PATIENT
  Sex: Female

DRUGS (1)
  1. XOLAIR [Suspect]
     Active Substance: OMALIZUMAB
     Indication: Idiopathic urticaria
     Route: 065
     Dates: start: 2016

REACTIONS (7)
  - Arthralgia [Recovered/Resolved]
  - Erythema [Recovered/Resolved]
  - Swelling [Recovered/Resolved]
  - Urticaria [Unknown]
  - Inflammation [Recovered/Resolved]
  - Tendon disorder [Recovered/Resolved]
  - Arthropathy [Recovered/Resolved]
